FAERS Safety Report 13931464 (Version 2)
Quarter: 2018Q2

REPORT INFORMATION
  Report Type: Report from Study
  Country: CH (occurrence: CH)
  Receive Date: 20170903
  Receipt Date: 20180601
  Transmission Date: 20180711
  Serious: Yes (Death, Hospitalization, Other)
  Sender: FDA-Public Use
  Company Number: PHHY2017CH128012

PATIENT
  Sex: Male

DRUGS (2)
  1. ENTRESTO [Suspect]
     Active Substance: SACUBITRIL\VALSARTAN
     Dosage: 200 MG, BID
     Route: 065
  2. ENTRESTO [Suspect]
     Active Substance: SACUBITRIL\VALSARTAN
     Indication: CARDIAC FAILURE
     Dosage: 50 MG (SACUBITRIL 24 MG AND VALSARTAN 26 MG), BID
     Route: 065
     Dates: start: 20170425, end: 20170505

REACTIONS (18)
  - Joint dislocation [Unknown]
  - Oedema peripheral [Unknown]
  - Peripheral arterial occlusive disease [Unknown]
  - Tachycardia [Unknown]
  - Hyperkalaemia [Unknown]
  - Cardiogenic shock [Unknown]
  - General physical health deterioration [Unknown]
  - Hypotonia [Unknown]
  - Femoral neck fracture [Unknown]
  - Arthralgia [Unknown]
  - Acute kidney injury [Unknown]
  - Tachypnoea [Unknown]
  - Metabolic acidosis [Unknown]
  - Capillary nail refill test abnormal [Unknown]
  - Weight increased [Unknown]
  - Hyperparathyroidism [Unknown]
  - Death [Fatal]
  - Fall [Unknown]

NARRATIVE: CASE EVENT DATE: 20170721
